FAERS Safety Report 18247662 (Version 8)
Quarter: 2021Q2

REPORT INFORMATION
  Report Type: Spontaneous
  Country: US (occurrence: US)
  Receive Date: 20200909
  Receipt Date: 20210617
  Transmission Date: 20210717
  Serious: Yes (Other)
  Sender: FDA-Public Use
  Company Number: US-PFIZER INC-2020348668

PATIENT
  Age: 63 Year
  Sex: Female
  Weight: 103.87 kg

DRUGS (1)
  1. IBRANCE [Suspect]
     Active Substance: PALBOCICLIB
     Indication: BREAST CANCER METASTATIC
     Dosage: 125 MG, ONCE DAILY 3 WEEKS ON AND 1 WEEK OFF
     Route: 048
     Dates: start: 2020

REACTIONS (11)
  - Thrombosis [Unknown]
  - Loss of personal independence in daily activities [Unknown]
  - Illness [Unknown]
  - Depression [Unknown]
  - Anxiety [Unknown]
  - Temporomandibular joint syndrome [Unknown]
  - Emotional disorder [Unknown]
  - Body height decreased [Unknown]
  - Headache [Unknown]
  - Nervousness [Unknown]
  - Alopecia [Not Recovered/Not Resolved]

NARRATIVE: CASE EVENT DATE: 2020
